FAERS Safety Report 5566383-4 (Version None)
Quarter: 2007Q4

REPORT INFORMATION
  Report Type: 
  Country: None (occurrence: None)
  Receive Date: 20071219
  Receipt Date: 20071205
  Transmission Date: 20080405
  Serious: Yes (Other)
  Sender: FDA-Public Use
  Company Number: US-BAYER-200613600BWH

PATIENT
  Sex: Male

DRUGS (7)
  1. AVELOX [Suspect]
     Indication: DRUG USE FOR UNKNOWN INDICATION
     Route: 048
  2. ADVAIR DISKUS 100/50 [Concomitant]
     Route: 065
  3. COMBIVENT [Concomitant]
     Route: 065
  4. COUMADIN [Concomitant]
     Route: 065
  5. CRESTOR [Concomitant]
     Route: 065
  6. XANAX [Concomitant]
     Route: 065
  7. DIGOXIN [Concomitant]
     Route: 065

REACTIONS (4)
  - HYPERALBUMINAEMIA [None]
  - NEUROPATHY [None]
  - PANCREATITIS [None]
  - RENAL FAILURE ACUTE [None]
